FAERS Safety Report 5877034-3 (Version None)
Quarter: 2008Q3

REPORT INFORMATION
  Report Type: 
  Country: None (occurrence: None)
  Receive Date: 20080910
  Receipt Date: 20080902
  Transmission Date: 20090109
  Serious: Yes (Disabling)
  Sender: FDA-Public Use
  Company Number: PHEH2008US05887

PATIENT
  Sex: Female
  Weight: 45.351 kg

DRUGS (5)
  1. RECLAST [Suspect]
     Indication: OSTEOPOROSIS
  2. ADVAIR DISKUS 100/50 [Concomitant]
     Indication: CHRONIC OBSTRUCTIVE PULMONARY DISEASE
     Dosage: 250/50 1 DOSE BID
  3. OXYGEN [Concomitant]
  4. ASPIRIN [Concomitant]
     Dosage: 81 MG, QD
  5. CALCIUM CARBONATE W/VITAMIN D NOS [Concomitant]

REACTIONS (3)
  - PAIN [None]
  - PARAESTHESIA [None]
  - SLEEP DISORDER [None]
